FAERS Safety Report 10748208 (Version 5)
Quarter: 2015Q3

REPORT INFORMATION
  Report Type: Spontaneous
  Country: ZA (occurrence: ZA)
  Receive Date: 20150129
  Receipt Date: 20150817
  Transmission Date: 20151125
  Serious: Yes (Hospitalization, Other)
  Sender: FDA-Public Use
  Company Number: ZA-009507513-1501ZAF009768

PATIENT
  Age: 87 Year
  Sex: Male

DRUGS (2)
  1. CELESTONE SOLUSPAN [Suspect]
     Active Substance: BETAMETHASONE ACETATE\BETAMETHASONE SODIUM PHOSPHATE
     Indication: SCIATICA
     Dosage: UNK
     Route: 037
     Dates: start: 20141120
  2. CELESTONE SOLUSPAN [Suspect]
     Active Substance: BETAMETHASONE ACETATE\BETAMETHASONE SODIUM PHOSPHATE
     Indication: BACK PAIN

REACTIONS (12)
  - Mental impairment [Unknown]
  - Fall [Unknown]
  - Dysarthria [Not Recovered/Not Resolved]
  - Amnesia [Not Recovered/Not Resolved]
  - Confusional state [Not Recovered/Not Resolved]
  - Head injury [Unknown]
  - Delusion [Unknown]
  - Adverse event [Unknown]
  - Lymphocyte count increased [Unknown]
  - Herpes simplex encephalitis [Not Recovered/Not Resolved]
  - Anger [Unknown]
  - Malignant hypertension [Unknown]

NARRATIVE: CASE EVENT DATE: 20141206
